FAERS Safety Report 10058648 (Version 2)
Quarter: 2014Q2

REPORT INFORMATION
  Report Type: Spontaneous
  Country: BR (occurrence: BR)
  Receive Date: 20140404
  Receipt Date: 20140404
  Transmission Date: 20141212
  Serious: Yes (Other)
  Sender: FDA-Public Use
  Company Number: BR-PFIZER INC-2013183378

PATIENT
  Sex: Female

DRUGS (1)
  1. EVANOR [Suspect]
     Indication: CONTRACEPTION
     Dosage: 0.25/0.05 MG
     Dates: start: 1998

REACTIONS (8)
  - Abortion spontaneous [Unknown]
  - Drug ineffective [Unknown]
  - Unintended pregnancy [Unknown]
  - Menstruation delayed [Not Recovered/Not Resolved]
  - Stress [Unknown]
  - Panic disorder [Not Recovered/Not Resolved]
  - Insomnia [Not Recovered/Not Resolved]
  - Thinking abnormal [Not Recovered/Not Resolved]
